FAERS Safety Report 11942642 (Version 1)
Quarter: 2016Q1

REPORT INFORMATION
  Report Type: Spontaneous
  Country: US (occurrence: US)
  Receive Date: 20160125
  Receipt Date: 20160125
  Transmission Date: 20160526
  Serious: No
  Sender: FDA-Public Use
  Company Number: US-UNITED THERAPEUTICS-UNT-2015-008448

PATIENT
  Sex: Female
  Weight: 82.99 kg

DRUGS (5)
  1. COUMADIN [Concomitant]
     Active Substance: WARFARIN SODIUM
     Indication: PRODUCT USED FOR UNKNOWN INDICATION
  2. TRACLEER [Concomitant]
     Active Substance: BOSENTAN
     Indication: PRODUCT USED FOR UNKNOWN INDICATION
  3. REMODULIN [Suspect]
     Active Substance: TREPROSTINIL
     Dosage: 0.01125 ?G/KG/MIN, CONTINUING
     Route: 058
  4. REMODULIN [Suspect]
     Active Substance: TREPROSTINIL
     Indication: PULMONARY ARTERIAL HYPERTENSION
     Dosage: 0.00125 ?G/KG/MIN, CONTINUING
     Route: 058
     Dates: start: 20150707
  5. ADCIRCA [Concomitant]
     Active Substance: TADALAFIL
     Indication: PRODUCT USED FOR UNKNOWN INDICATION

REACTIONS (11)
  - Thrombosis in device [Recovered/Resolved]
  - Drug dose omission [Unknown]
  - Pain in jaw [Unknown]
  - Diarrhoea [Unknown]
  - Constipation [Unknown]
  - Device dislocation [Unknown]
  - Weight decreased [Unknown]
  - Back pain [Unknown]
  - Device issue [Recovered/Resolved]
  - Fluid retention [Unknown]
  - Headache [Unknown]

NARRATIVE: CASE EVENT DATE: 2015
